FAERS Safety Report 7233624-7 (Version None)
Quarter: 2011Q1

REPORT INFORMATION
  Report Type: 
  Country: None (occurrence: None)
  Receive Date: 20110119
  Receipt Date: 20110112
  Transmission Date: 20110831
  Serious: Yes (Hospitalization)
  Sender: FDA-Public Use
  Company Number: FI-MERCK-1101FIN00012

PATIENT
  Age: 51 Year
  Sex: Female

DRUGS (9)
  1. TRABECTEDIN [Suspect]
     Indication: OVARIAN CANCER
     Route: 042
     Dates: start: 20100125
  2. CORTICOSTEROIDS (UNSPECIFIED) [Concomitant]
     Indication: PREMEDICATION
     Route: 042
     Dates: start: 20100101
  3. EMEND [Suspect]
     Indication: NAUSEA
     Route: 048
     Dates: start: 20100126, end: 20100126
  4. TROPISETRON HYDROCHLORIDE [Concomitant]
     Route: 048
  5. METHYLPREDNISOLONE [Concomitant]
     Route: 042
  6. DOXORUBICIN HYDROCHLORIDE [Suspect]
     Indication: OVARIAN CANCER
     Route: 065
     Dates: start: 20100125
  7. ONDANSETRON HYDROCHLORIDE [Concomitant]
     Route: 065
  8. EMEND [Suspect]
     Indication: VOMITING
     Route: 048
     Dates: start: 20100126, end: 20100126
  9. METOCLOPRAMIDE HYDROCHLORIDE [Concomitant]
     Route: 065

REACTIONS (5)
  - HEPATIC ENZYME INCREASED [None]
  - DRUG INTERACTION [None]
  - VOMITING [None]
  - NAUSEA [None]
  - SUBILEUS [None]
